FAERS Safety Report 23580191 (Version 1)
Quarter: 2024Q1

REPORT INFORMATION
  Report Type: Spontaneous
  Country: US (occurrence: None)
  Receive Date: 20240228
  Receipt Date: 20240228
  Transmission Date: 20240410
  Serious: Yes (Disabling)
  Sender: FDA-Public Use
  Company Number: None

PATIENT
  Age: 64 Year
  Sex: Male
  Weight: 97.52 kg

DRUGS (18)
  1. REPATHA [Suspect]
     Active Substance: EVOLOCUMAB
     Indication: Hyperlipidaemia
     Dosage: 2 INJECTIONS EVERY 2 WKS. SUBCUTANEOUS?
     Route: 058
     Dates: start: 20170101, end: 20231215
  2. DEVICE [Concomitant]
     Active Substance: DEVICE
  3. TEST  CYPIONATE [Concomitant]
  4. LEVOTHYROXINE [Concomitant]
     Active Substance: LEVOTHYROXINE\LEVOTHYROXINE SODIUM
  5. TADALAFIL [Concomitant]
  6. BRIMONIDINE EYE DROP [Concomitant]
  7. LATANOPROST EYE DROPS [Concomitant]
  8. ASPIRIN [Concomitant]
     Active Substance: ASPIRIN
  9. VITAMIN D3 [Concomitant]
     Active Substance: CHOLECALCIFEROL
  10. EPA/DHA [Concomitant]
  11. FISH OIL [Concomitant]
     Active Substance: FISH OIL
  12. VITAMIN C [Concomitant]
     Active Substance: ASCORBIC ACID
  13. VIT K2 [Concomitant]
  14. LEVOTHYROXINE [Concomitant]
     Active Substance: LEVOTHYROXINE\LEVOTHYROXINE SODIUM
  15. TESTOSTERONE [Concomitant]
  16. VITAMIN E [Concomitant]
     Active Substance: .ALPHA.-TOCOPHEROL
  17. VITAMINS [Concomitant]
     Active Substance: VITAMINS
  18. MAGNESIUM [Concomitant]
     Active Substance: MAGNESIUM

REACTIONS (18)
  - Fatigue [None]
  - Nervous system disorder [None]
  - Cognitive disorder [None]
  - Neuropathy peripheral [None]
  - Musculoskeletal stiffness [None]
  - Pain [None]
  - Myalgia [None]
  - Asthenia [None]
  - Vertigo [None]
  - Dizziness [None]
  - Headache [None]
  - Dyspnoea [None]
  - Mental disorder [None]
  - Memory impairment [None]
  - Nasopharyngitis [None]
  - Liver disorder [None]
  - Fatigue [None]
  - Visual impairment [None]

NARRATIVE: CASE EVENT DATE: 20220701
